FAERS Safety Report 7558477-9 (Version None)
Quarter: 2011Q2

REPORT INFORMATION
  Report Type: 
  Country: None (occurrence: None)
  Receive Date: 20110620
  Receipt Date: 20110615
  Transmission Date: 20111010
  Serious: Yes (Disabling)
  Sender: FDA-Public Use
  Company Number: US-MERCK-1106USA02212

PATIENT
  Age: 45 Year
  Sex: Female

DRUGS (2)
  1. BONIVA [Suspect]
     Route: 065
     Dates: start: 20070101, end: 20100101
  2. FOSAMAX [Suspect]
     Route: 048
     Dates: start: 19980101, end: 20070101

REACTIONS (4)
  - FRACTURE [None]
  - OSTEOPOROSIS [None]
  - STRESS FRACTURE [None]
  - LOW TURNOVER OSTEOPATHY [None]
